FAERS Safety Report 8600515-6 (Version None)
Quarter: 2012Q3

REPORT INFORMATION
  Report Type: 
  Country: None (occurrence: None)
  Receive Date: 20120803
  Receipt Date: 20120723
  Transmission Date: 20120928
  Serious: Yes (Disabling, Other)
  Sender: FDA-Public Use
  Company Number: AUR-APL-2012-03182

PATIENT
  Age: 75 Year
  Sex: Female

DRUGS (3)
  1. RAMIPRIL [Suspect]
     Indication: DYSPEPSIA
     Dosage: (150 MG), ORAL
     Route: 048
     Dates: start: 20120604, end: 20120615
  2. OMEPRAZOLE [Concomitant]
  3. LEVOTHYROXINE SODIUM [Concomitant]

REACTIONS (2)
  - ILL-DEFINED DISORDER [None]
  - OEDEMA PERIPHERAL [None]
